FAERS Safety Report 19638713 (Version 1)
Quarter: 2021Q3

REPORT INFORMATION
  Report Type: Spontaneous
  Country: AR (occurrence: AR)
  Receive Date: 20210730
  Receipt Date: 20210730
  Transmission Date: 20211014
  Serious: Yes (Other)
  Sender: FDA-Public Use
  Company Number: AR-PFIZER INC-202100917445

PATIENT
  Age: 37 Year
  Sex: Male

DRUGS (1)
  1. SUTENT [Suspect]
     Active Substance: SUNITINIB MALATE
     Indication: METASTATIC RENAL CELL CARCINOMA
     Dosage: 50 MG, CYCLIC (DAILY, SCHEME 4/2 REST)
     Dates: start: 20201019, end: 202106

REACTIONS (10)
  - Bone pain [Unknown]
  - Bone lesion [Unknown]
  - Central nervous system lesion [Unknown]
  - Bone fissure [Unknown]
  - Loss of personal independence in daily activities [Unknown]
  - Bone decalcification [Unknown]
  - Haemorrhoids [Unknown]
  - Headache [Unknown]
  - Flatulence [Unknown]
  - Musculoskeletal disorder [Unknown]

NARRATIVE: CASE EVENT DATE: 2021
